FAERS Safety Report 15244402 (Version 1)
Quarter: 2018Q3

REPORT INFORMATION
  Report Type: Spontaneous
  Country: FR (occurrence: FR)
  Receive Date: 20180806
  Receipt Date: 20180806
  Transmission Date: 20181010
  Serious: Yes (Hospitalization)
  Sender: FDA-Public Use
  Company Number: FR-MYLANLABS-2018M1057686

PATIENT
  Age: 53 Year
  Sex: Female

DRUGS (5)
  1. CYTARABINE. [Suspect]
     Active Substance: CYTARABINE
     Indication: PRODUCT USED FOR UNKNOWN INDICATION
     Dosage: 100 MG/M2, QD
     Route: 041
  2. IDARUBICIN [Suspect]
     Active Substance: IDARUBICIN
     Indication: PRODUCT USED FOR UNKNOWN INDICATION
     Dosage: 12 MG/M2, QD
     Route: 065
  3. DASATINIB. [Concomitant]
     Active Substance: DASATINIB
     Indication: PRODUCT USED FOR UNKNOWN INDICATION
     Dosage: 70 MG, BID
     Route: 065
  4. IMATINIB [Suspect]
     Active Substance: IMATINIB
     Indication: ACUTE MEGAKARYOCYTIC LEUKAEMIA
     Dosage: 800 MG, QD
     Route: 065
  5. IMATINIB [Suspect]
     Active Substance: IMATINIB
     Dosage: 400 MG, QD
     Route: 065
     Dates: start: 20050328, end: 20050405

REACTIONS (8)
  - Toxic shock syndrome [Unknown]
  - Forced expiratory volume decreased [Unknown]
  - Malignant neoplasm progression [Unknown]
  - Seizure [Unknown]
  - Generalised oedema [Unknown]
  - Cardiomegaly [Unknown]
  - Lung disorder [Unknown]
  - Sepsis [Unknown]

NARRATIVE: CASE EVENT DATE: 20050328
